FAERS Safety Report 6306973-4 (Version None)
Quarter: 2009Q3

REPORT INFORMATION
  Report Type: 
  Country: None (occurrence: None)
  Receive Date: 20090812
  Receipt Date: 20090803
  Transmission Date: 20100115
  Serious: Yes (Other)
  Sender: FDA-Public Use
  Company Number: US-BAXTER-2009BH012334

PATIENT
  Age: 13 Year
  Sex: Male

DRUGS (3)
  1. SODIUM CHLORIDE 0.9% IN PLASTIC CONTAINER [Suspect]
     Indication: INTRAVENOUS CATHETER MANAGEMENT
     Route: 042
     Dates: start: 20090709
  2. SODIUM CHLORIDE (HOSPIRA) [Suspect]
     Indication: INTRAVENOUS CATHETER MANAGEMENT
     Route: 042
     Dates: start: 20090701, end: 20090701
  3. FACTOR VIII [Concomitant]
     Indication: HAEMOPHILIA
     Route: 042

REACTIONS (5)
  - CATHETER RELATED INFECTION [None]
  - FLUSHING [None]
  - HEADACHE [None]
  - PALPITATIONS [None]
  - STAPHYLOCOCCAL INFECTION [None]
